FAERS Safety Report 18401175 (Version 1)
Quarter: 2020Q4

REPORT INFORMATION
  Report Type: Spontaneous
  Country: US (occurrence: US)
  Receive Date: 20201019
  Receipt Date: 20201019
  Transmission Date: 20210114
  Serious: Yes (Other)
  Sender: FDA-Public Use
  Company Number: US-FRESENIUS KABI-FK202010944

PATIENT
  Age: 73 Year
  Sex: Male

DRUGS (4)
  1. VANCOMYCIN (MANUFACTURER UNKNOWN) [Suspect]
     Active Substance: VANCOMYCIN
     Indication: PNEUMONIA BACTERIAL
     Dosage: UNKNOWN
     Route: 065
  2. AZITHROMYCIN (MANUFACTURER UNKNOWN) [Suspect]
     Active Substance: AZITHROMYCIN ANHYDROUS
     Indication: PNEUMONIA BACTERIAL
     Dosage: UNKNOWN
     Route: 065
  3. PIPERACILLIN/TAZOBACTAM (MANUFACTURER UNKNOWN) [Suspect]
     Active Substance: PIPERACILLIN SODIUM\TAZOBACTAM SODIUM
     Indication: PNEUMONIA BACTERIAL
     Dosage: UNKNOWN
     Route: 065
  4. PREDNISONE. [Suspect]
     Active Substance: PREDNISONE
     Indication: PNEUMONIA BACTERIAL
     Dosage: UNKNOWN
     Route: 065

REACTIONS (2)
  - COVID-19 [Recovered/Resolved]
  - Pneumatosis intestinalis [Recovered/Resolved]
